FAERS Safety Report 13306981 (Version 13)
Quarter: 2019Q1

REPORT INFORMATION
  Report Type: Report from Study
  Country: DE (occurrence: DE)
  Receive Date: 20170308
  Receipt Date: 20190312
  Transmission Date: 20190417
  Serious: Yes (Hospitalization, Other)
  Sender: FDA-Public Use
  Company Number: DE-BRISTOL-MYERS SQUIBB COMPANY-BMS-2017-018584

PATIENT
  Age: 63 Year
  Sex: Female

DRUGS (10)
  1. ASPIRIN. [Concomitant]
     Active Substance: ASPIRIN
     Indication: CARDIOVASCULAR DISORDER
     Dosage: 100 MG, UNK
     Route: 065
  2. L-THYROXIN [Concomitant]
     Active Substance: LEVOTHYROXINE SODIUM
     Indication: METABOLIC DISORDER
     Dosage: 50 ?G, UNK
     Route: 065
  3. METFORMIN [Concomitant]
     Active Substance: METFORMIN HYDROCHLORIDE
     Indication: PRODUCT USED FOR UNKNOWN INDICATION
     Dosage: 500 MG, UNK
     Route: 065
  4. NIVOLUMAB [Suspect]
     Active Substance: NIVOLUMAB
     Indication: NON-SMALL CELL LUNG CANCER
     Dosage: 3 MG/KG, Q2WK
     Route: 042
     Dates: start: 20161117, end: 20170831
  5. TORASEMID [Concomitant]
     Active Substance: TORSEMIDE
     Indication: CARDIOVASCULAR DISORDER
     Dosage: 10 MG, UNK
     Route: 065
  6. ATORVASTATIN [Concomitant]
     Active Substance: ATORVASTATIN
     Indication: METABOLIC DISORDER
     Dosage: 500 MG, UNK
     Route: 065
  7. SPIRIVA [Concomitant]
     Active Substance: TIOTROPIUM BROMIDE MONOHYDRATE
     Indication: LUNG DISORDER
     Dosage: 2.5 ?G, UNK
     Route: 065
  8. ALLOPURINOL. [Concomitant]
     Active Substance: ALLOPURINOL
     Indication: PROPHYLAXIS
     Dosage: 100 MG, UNK
     Route: 065
  9. RAMIPRIL. [Concomitant]
     Active Substance: RAMIPRIL
     Indication: CARDIOVASCULAR DISORDER
     Dosage: 5 MG, UNK
     Route: 065
  10. METOPROLOL SUCCINATE. [Concomitant]
     Active Substance: METOPROLOL SUCCINATE
     Indication: CARDIOVASCULAR DISORDER
     Dosage: 47.5 MG, UNK
     Route: 065

REACTIONS (11)
  - Tachycardia [Recovered/Resolved]
  - Chills [Recovered/Resolved]
  - Hypokalaemia [Recovered/Resolved]
  - Weight decreased [Not Recovered/Not Resolved]
  - Herpes zoster [Recovered/Resolved]
  - Vomiting [Recovered/Resolved]
  - Arterial occlusive disease [Unknown]
  - Arthralgia [Recovered/Resolved]
  - Diarrhoea [Recovered/Resolved]
  - Arrhythmia [Recovered/Resolved]
  - Aortoenteric fistula [Recovered/Resolved]

NARRATIVE: CASE EVENT DATE: 20161231
